FAERS Safety Report 9335094 (Version 2)
Quarter: 2013Q2

REPORT INFORMATION
  Report Type: Spontaneous
  Country: US (occurrence: US)
  Receive Date: 20130606
  Receipt Date: 20130613
  Transmission Date: 20140414
  Serious: No
  Sender: FDA-Public Use
  Company Number: US-PFIZER INC-2013170244

PATIENT
  Age: 73 Year
  Sex: Male
  Weight: 74.83 kg

DRUGS (2)
  1. TOVIAZ [Suspect]
     Indication: BLADDER DISORDER
     Dosage: 4 MG, UNK
  2. TOVIAZ [Suspect]
     Dosage: 8 MG, UNK
     Dates: start: 2013

REACTIONS (3)
  - Drug effect decreased [Unknown]
  - Pruritus [Unknown]
  - Drug ineffective [Unknown]
